FAERS Safety Report 9347310 (Version 1)
Quarter: 2013Q2

REPORT INFORMATION
  Report Type: Report from Study
  Country: CA (occurrence: CA)
  Receive Date: 20130613
  Receipt Date: 20130613
  Transmission Date: 20140414
  Serious: Yes (Other)
  Sender: FDA-Public Use
  Company Number: CA-BAXTER-2013BAX022002

PATIENT
  Sex: Female

DRUGS (1)
  1. KIOVIG HUMAN NORMAL IMMUNOGLOBULIN (IVIG) 10% [Suspect]
     Indication: PRIMARY IMMUNODEFICIENCY SYNDROME
     Route: 058
     Dates: start: 2010, end: 2010

REACTIONS (3)
  - Immunoglobulins decreased [Recovered/Resolved]
  - Pain [Recovered/Resolved]
  - Incorrect route of drug administration [Recovered/Resolved]
